FAERS Safety Report 4715363-7 (Version None)
Quarter: 2005Q3

REPORT INFORMATION
  Report Type: 
  Country: None (occurrence: None)
  Receive Date: 20050715
  Receipt Date: 20050310
  Transmission Date: 20060218
  Serious: Yes (Hospitalization, Other)
  Sender: FDA-Public Use
  Company Number: US-MERCK-0503USA02341

PATIENT
  Age: 51 Year
  Sex: Male
  Weight: 107 kg

DRUGS (13)
  1. VIOXX [Suspect]
     Indication: ARTHRITIS
     Route: 048
     Dates: start: 19990101, end: 20041001
  2. VIOXX [Suspect]
     Indication: JOINT INJURY
     Route: 048
     Dates: start: 19990101, end: 20041001
  3. ZOLOFT [Concomitant]
     Indication: PANIC DISORDER
     Route: 065
     Dates: start: 19980101, end: 20040101
  4. PROCARDIA [Concomitant]
     Indication: CHRONIC OBSTRUCTIVE PULMONARY DISEASE
     Route: 065
     Dates: start: 19980101, end: 20000101
  5. FIORINAL [Concomitant]
     Route: 065
     Dates: start: 20000101, end: 20030101
  6. AMBIEN [Concomitant]
     Route: 065
  7. ERYTHROMYCIN [Concomitant]
     Route: 065
  8. VOLMAX [Concomitant]
     Indication: ASTHMA
     Route: 065
  9. CYCLOBENZAPRINE HYDROCHLORIDE [Concomitant]
     Route: 065
     Dates: start: 20000131, end: 20030228
  10. ENDOCET [Concomitant]
     Route: 065
     Dates: start: 20000616, end: 20040820
  11. VALIUM [Concomitant]
     Indication: PANIC DISORDER
     Route: 065
     Dates: start: 19980101, end: 20040101
  12. DIGOXIN [Concomitant]
     Route: 065
     Dates: start: 20000101, end: 20000101
  13. AMIODARONE HYDROCHLORIDE [Suspect]
     Route: 065

REACTIONS (40)
  - ANAEMIA [None]
  - ANGINA PECTORIS [None]
  - ANXIETY [None]
  - CARDIAC ARREST [None]
  - CARDIAC FAILURE CONGESTIVE [None]
  - CARDIAC VALVE DISEASE [None]
  - CARDIO-RESPIRATORY ARREST [None]
  - CHEST WALL PAIN [None]
  - CHOLELITHIASIS [None]
  - CHRONIC FATIGUE SYNDROME [None]
  - CORONARY ARTERY OCCLUSION [None]
  - DIFFICULTY IN WALKING [None]
  - DRUG INTERACTION [None]
  - DYSPNOEA [None]
  - GASTROINTESTINAL DISORDER [None]
  - GASTROOESOPHAGEAL REFLUX DISEASE [None]
  - HEADACHE [None]
  - HEART RATE IRREGULAR [None]
  - HYPERPLASIA [None]
  - HYPOXIA [None]
  - INTERMITTENT CLAUDICATION [None]
  - ISCHAEMIC CARDIOMYOPATHY [None]
  - LEUKOCYTOSIS [None]
  - MULTI-ORGAN DISORDER [None]
  - MYOCARDIAL INFARCTION [None]
  - NAUSEA [None]
  - NEPHROLITHIASIS [None]
  - OBESITY [None]
  - OEDEMA [None]
  - PAIN [None]
  - PANIC DISORDER [None]
  - PEPTIC ULCER [None]
  - PNEUMONIA [None]
  - POST-TRAUMATIC STRESS DISORDER [None]
  - PROSTATIC SPECIFIC ANTIGEN INCREASED [None]
  - PULMONARY HYPERTENSION [None]
  - RESPIRATORY FAILURE [None]
  - UPPER RESPIRATORY TRACT INFECTION [None]
  - VASCULAR INJURY [None]
  - VOMITING [None]
